FAERS Safety Report 18792885 (Version 3)
Quarter: 2021Q2

REPORT INFORMATION
  Report Type: Spontaneous
  Country: FR (occurrence: FR)
  Receive Date: 20210127
  Receipt Date: 20210616
  Transmission Date: 20210717
  Serious: Yes (Hospitalization, Other)
  Sender: FDA-Public Use
  Company Number: FR-SA-2021SA023511

PATIENT
  Age: 34 Year
  Sex: Female
  Weight: 83 kg

DRUGS (7)
  1. HYDROCORTISONE. [Concomitant]
     Active Substance: HYDROCORTISONE
     Dosage: UNK
     Route: 058
  2. MONTELUKAST [Concomitant]
     Active Substance: MONTELUKAST SODIUM
     Indication: ASTHMA
     Dosage: UNK
     Dates: start: 20180412
  3. CETRIZINE [Concomitant]
     Active Substance: CETIRIZINE HYDROCHLORIDE
     Dosage: UNK
  4. XOLAIR [Concomitant]
     Active Substance: OMALIZUMAB
     Dosage: 375 MG, QOW
     Route: 058
     Dates: start: 20210128
  5. MENTHOL AND METHYL SALICYLATE [Concomitant]
     Active Substance: MENTHOL\METHYL SALICYLATE
     Route: 048
  6. DUPIXENT [Suspect]
     Active Substance: DUPILUMAB
     Indication: ASTHMA
     Dosage: 600 MG, 1X
     Route: 058
     Dates: start: 20210111, end: 20210111
  7. XOLAIR [Concomitant]
     Active Substance: OMALIZUMAB
     Indication: ASTHMA
     Dosage: 375 MG, QOW
     Route: 058
     Dates: start: 20190315

REACTIONS (13)
  - Chills [Recovering/Resolving]
  - Anaphylactic reaction [Recovered/Resolved]
  - Asthmatic crisis [Recovering/Resolving]
  - Discomfort [Recovering/Resolving]
  - Respiratory disorder [Unknown]
  - Asthma [Recovered/Resolved]
  - Paraesthesia [Recovering/Resolving]
  - Tachycardia [Recovered/Resolved]
  - Injection site swelling [Unknown]
  - Skin disorder [Unknown]
  - Injection site oedema [Unknown]
  - Pruritus [Recovered/Resolved]
  - Erythema [Recovered/Resolved]

NARRATIVE: CASE EVENT DATE: 202101
